FAERS Safety Report 14251992 (Version 4)
Quarter: 2018Q1

REPORT INFORMATION
  Report Type: Spontaneous
  Country: US (occurrence: US)
  Receive Date: 20171205
  Receipt Date: 20180215
  Transmission Date: 20180508
  Serious: Yes (Other)
  Sender: FDA-Public Use
  Company Number: US-GLAXOSMITHKLINE-US2017GSK184645

PATIENT
  Sex: Female
  Weight: 63.95 kg

DRUGS (4)
  1. VENTOLIN [Suspect]
     Active Substance: ALBUTEROL SULFATE
     Indication: DYSPNOEA
     Dosage: UNK
     Route: 055
  2. VENTOLIN [Suspect]
     Active Substance: ALBUTEROL SULFATE
     Indication: LUNG DISORDER
  3. ADVAIR DISKUS [Suspect]
     Active Substance: FLUTICASONE PROPIONATE\SALMETEROL XINAFOATE
     Indication: DYSPNOEA
     Dosage: UNK
     Route: 055
  4. ADVAIR DISKUS [Suspect]
     Active Substance: FLUTICASONE PROPIONATE\SALMETEROL XINAFOATE
     Indication: LUNG DISORDER

REACTIONS (15)
  - Thyroid cancer [Unknown]
  - Blood calcium increased [Unknown]
  - Wheezing [Recovering/Resolving]
  - Bone cancer [Unknown]
  - Atrial fibrillation [Unknown]
  - Hysterectomy [Unknown]
  - Cardiac operation [Unknown]
  - Urinary bladder suspension [Unknown]
  - Osteitis deformans [Unknown]
  - Cancer surgery [Unknown]
  - Pulmonary mass [Unknown]
  - Cough [Not Recovered/Not Resolved]
  - Skin cancer [Unknown]
  - Scar [Unknown]
  - Blood parathyroid hormone increased [Unknown]

NARRATIVE: CASE EVENT DATE: 2001
